FAERS Safety Report 4287337-4 (Version None)
Quarter: 2004Q1

REPORT INFORMATION
  Report Type: 
  Country: None (occurrence: None)
  Receive Date: 20040126
  Receipt Date: 20030915
  Transmission Date: 20041129
  Serious: No
  Sender: FDA-Public Use
  Company Number: USA030741628

PATIENT
  Age: 67 Year
  Sex: Female
  Weight: 51 kg

DRUGS (2)
  1. FORTEO [Suspect]
     Indication: OSTEOPOROSIS
     Dates: start: 20030628, end: 20030718
  2. EVISTA [Suspect]
     Dates: start: 20030101, end: 20030701

REACTIONS (6)
  - INJECTION SITE ERYTHEMA [None]
  - INJECTION SITE HAEMORRHAGE [None]
  - INJECTION SITE PAIN [None]
  - MUSCLE CRAMP [None]
  - POLLAKIURIA [None]
  - URINE OUTPUT INCREASED [None]
